FAERS Safety Report 6211060-X (Version None)
Quarter: 2009Q2

REPORT INFORMATION
  Report Type: 
  Country: None (occurrence: None)
  Receive Date: 20090528
  Receipt Date: 20090522
  Transmission Date: 20091009
  Serious: Yes (Other)
  Sender: FDA-Public Use
  Company Number: SPV1-2009-01029

PATIENT
  Age: 14 Year
  Sex: Male

DRUGS (1)
  1. VYVANSE [Suspect]
     Dosage: 50 MG, 1X/DAY:QD,ORAL
     Route: 048
     Dates: start: 20080601

REACTIONS (2)
  - CHOLELITHIASIS [None]
  - OFF LABEL USE [None]
